FAERS Safety Report 19293357 (Version 1)
Quarter: 2021Q2

REPORT INFORMATION
  Report Type: Spontaneous
  Country: IT (occurrence: IT)
  Receive Date: 20210524
  Receipt Date: 20210524
  Transmission Date: 20210717
  Serious: Yes (Other)
  Sender: FDA-Public Use
  Company Number: IT-PFIZER INC-2021520562

PATIENT
  Age: 27 Year
  Sex: Male

DRUGS (6)
  1. ETOPOSIDE. [Suspect]
     Active Substance: ETOPOSIDE
     Indication: SARCOMA
     Dosage: AS A PART OF CEVAIE REGIMEN
     Route: 065
  2. CARBOPLATIN. [Suspect]
     Active Substance: CARBOPLATIN
     Indication: SARCOMA
     Dosage: AS A PART OF CEVAIE REGIMEN
     Route: 065
  3. EPIRUBICIN HCL [Suspect]
     Active Substance: EPIRUBICIN HYDROCHLORIDE
     Indication: SARCOMA
     Dosage: AS A PART OF CEVAIE REGIMEN
     Route: 065
  4. IFOSFAMIDE. [Suspect]
     Active Substance: IFOSFAMIDE
     Indication: SARCOMA
     Dosage: AS A PART OF CEVAIE REGIMEN
     Route: 065
  5. VINCRISTINE SULFATE. [Suspect]
     Active Substance: VINCRISTINE SULFATE
     Indication: SARCOMA
     Dosage: AS A PART OF CEVAIE REGIMEN
     Route: 065
  6. ACTINOMYCIN D [Suspect]
     Active Substance: DACTINOMYCIN
     Indication: SARCOMA
     Dosage: CEVAIE REGIMEN
     Route: 065

REACTIONS (2)
  - Second primary malignancy [Recovered/Resolved]
  - Salivary gland cancer [Recovered/Resolved]
